FAERS Safety Report 11303031 (Version 1)
Quarter: 2015Q3

REPORT INFORMATION
  Report Type: Spontaneous
  Country: ES (occurrence: ES)
  Receive Date: 20150723
  Receipt Date: 20150723
  Transmission Date: 20151125
  Serious: Yes (Hospitalization)
  Sender: FDA-Public Use
  Company Number: ES-ACTAVIS-2015-14794

PATIENT
  Age: 50 Year
  Sex: Female

DRUGS (1)
  1. DOCETAXEL ACTAVIS [Suspect]
     Active Substance: DOCETAXEL
     Indication: BREAST CANCER
     Dosage: 729 MG, TOTAL
     Route: 042
     Dates: start: 20150708, end: 20150708

REACTIONS (5)
  - Bone marrow failure [Unknown]
  - Neutropenia [Unknown]
  - Leukopenia [Unknown]
  - Overdose [Unknown]
  - Incorrect dose administered [Unknown]

NARRATIVE: CASE EVENT DATE: 20150708
